FAERS Safety Report 16522145 (Version 1)
Quarter: 2019Q3

REPORT INFORMATION
  Report Type: Report from Study
  Country: IT (occurrence: IT)
  Receive Date: 20190703
  Receipt Date: 20190703
  Transmission Date: 20191004
  Serious: Yes (Hospitalization)
  Sender: FDA-Public Use
  Company Number: IT-TEVA-2019-IT-1072095

PATIENT
  Age: 73 Year
  Sex: Female

DRUGS (2)
  1. DIAZEPAM. [Suspect]
     Active Substance: DIAZEPAM
     Indication: MEDICATION ERROR
     Route: 048
     Dates: start: 20190610, end: 20190610
  2. ANTABUSE DISPERGETTES 400MG COMPRESSE EFFERVESCENTI [Concomitant]
     Indication: ALCOHOL ABUSE

REACTIONS (2)
  - Sopor [Recovering/Resolving]
  - Medication error [Recovering/Resolving]

NARRATIVE: CASE EVENT DATE: 20190610
